FAERS Safety Report 13181988 (Version 1)
Quarter: 2017Q1

REPORT INFORMATION
  Report Type: Spontaneous
  Country: US (occurrence: US)
  Receive Date: 20170202
  Receipt Date: 20170202
  Transmission Date: 20170428
  Serious: Yes (Disabling)
  Sender: FDA-Public Use
  Company Number: None

PATIENT
  Age: 58 Year
  Sex: Female
  Weight: 72 kg

DRUGS (9)
  1. LISINOPRIL. [Concomitant]
     Active Substance: LISINOPRIL
  2. VITAMIN D [Concomitant]
     Active Substance: CHOLECALCIFEROL
  3. UBIQUINOL [Concomitant]
     Active Substance: UBIQUINOL
  4. PROBIOTIC [Concomitant]
     Active Substance: PROBIOTICS NOS
  5. ASPIRIN. [Concomitant]
     Active Substance: ASPIRIN
  6. TURMERIC [Concomitant]
     Active Substance: TURMERIC
  7. HYDROCHLOROTHIAZIDE. [Concomitant]
     Active Substance: HYDROCHLOROTHIAZIDE
  8. MOXIFLOXACIN. [Suspect]
     Active Substance: MOXIFLOXACIN
     Indication: SINUSITIS
     Dosage: ?          QUANTITY:10 TABLET(S);?
     Route: 048
     Dates: start: 20160510
  9. FISH OIL [Concomitant]
     Active Substance: FISH OIL

REACTIONS (3)
  - Malaise [None]
  - Anger [None]
  - Nervous system disorder [None]

NARRATIVE: CASE EVENT DATE: 20160513
